FAERS Safety Report 23083435 (Version 2)
Quarter: 2024Q4

REPORT INFORMATION
  Report Type: Spontaneous
  Country: IN (occurrence: IN)
  Receive Date: 20231019
  Receipt Date: 20241121
  Transmission Date: 20250114
  Serious: Yes (Other)
  Sender: NOVARTIS
  Company Number: IN-002147023-NVSC2023IN221872

PATIENT
  Age: 68 Year
  Sex: Female

DRUGS (1)
  1. BROLUCIZUMAB [Suspect]
     Active Substance: BROLUCIZUMAB
     Indication: Age-related macular degeneration
     Dosage: 6 MG
     Route: 031
     Dates: start: 20231003

REACTIONS (4)
  - Eye inflammation [Recovering/Resolving]
  - Ocular discomfort [Unknown]
  - Vitreous floaters [Unknown]
  - Anterior chamber cell [Unknown]

NARRATIVE: CASE EVENT DATE: 20231010
